FAERS Safety Report 6370261-0 (Version None)
Quarter: 2009Q3

REPORT INFORMATION
  Report Type: 
  Country: None (occurrence: None)
  Receive Date: 20090921
  Receipt Date: 20090921
  Transmission Date: 20100115
  Serious: Yes (Other)
  Sender: FDA-Public Use
  Company Number: None

PATIENT
  Sex: Female
  Weight: 69.8539 kg

DRUGS (1)
  1. TRAMADOL HYDROCHLORIDE AND ACETAMINOPHEN [Suspect]
     Indication: OSTEOARTHRITIS
     Dosage: 37.5/325MG TOOK ONLY ONE
     Dates: start: 20090906

REACTIONS (4)
  - DIZZINESS [None]
  - HYPERSOMNIA [None]
  - SOMNOLENCE [None]
  - VOMITING [None]
